FAERS Safety Report 8332328-7 (Version None)
Quarter: 2012Q2

REPORT INFORMATION
  Report Type: 
  Country: None (occurrence: None)
  Receive Date: 20120503
  Receipt Date: 20120425
  Transmission Date: 20120825
  Serious: Yes (Hospitalization)
  Sender: FDA-Public Use
  Company Number: US-AMGEN-USASP2012016087

PATIENT
  Age: 57 Year
  Sex: Male
  Weight: 90.703 kg

DRUGS (7)
  1. REMICADE [Concomitant]
     Dosage: UNK
  2. HUMIRA [Concomitant]
     Dosage: UNK
  3. ORENCIA [Concomitant]
     Dosage: UNK
  4. NORVASC [Concomitant]
     Indication: HYPERTENSION
     Dosage: 5 MG, QD
     Route: 048
  5. ENBREL [Suspect]
     Indication: RHEUMATOID ARTHRITIS
     Dosage: 50 MG, QWK
  6. CLOBEX                             /00012002/ [Concomitant]
     Indication: RASH
     Dosage: 0.05% LOTION
  7. OXYCODONE                          /00045603/ [Concomitant]
     Indication: PAIN
     Dosage: 15 MG, PRN

REACTIONS (8)
  - DEVICE FAILURE [None]
  - DRUG INEFFECTIVE [None]
  - RHEUMATOID ARTHRITIS [None]
  - INTERVERTEBRAL DISC DISORDER [None]
  - FOOT DEFORMITY [None]
  - INJECTION SITE URTICARIA [None]
  - HIP ARTHROPLASTY [None]
  - INJECTION SITE PAIN [None]
